FAERS Safety Report 8184579-2 (Version None)
Quarter: 2012Q1

REPORT INFORMATION
  Report Type: 
  Country: None (occurrence: None)
  Receive Date: 20120305
  Receipt Date: 20120301
  Transmission Date: 20120608
  Serious: Yes (Disabling)
  Sender: FDA-Public Use
  Company Number: GB-MERCK-1203GBR00013

PATIENT
  Age: 55 Year
  Sex: Male
  Weight: 96 kg

DRUGS (4)
  1. BISOPROLOL [Concomitant]
     Route: 065
     Dates: start: 20111101
  2. ZOCOR [Concomitant]
     Route: 048
     Dates: start: 20111101
  3. COZAAR [Suspect]
     Indication: HYPERTENSION
     Route: 065
     Dates: start: 20111101
  4. DOXAZOSIN MESYLATE [Concomitant]
     Route: 065
     Dates: start: 20111116

REACTIONS (2)
  - OEDEMA PERIPHERAL [None]
  - WEIGHT INCREASED [None]
